FAERS Safety Report 6999308-5 (Version None)
Quarter: 2010Q3

REPORT INFORMATION
  Report Type: 
  Country: None (occurrence: None)
  Receive Date: 20100920
  Receipt Date: 20100527
  Transmission Date: 20110219
  Serious: Yes (Other)
  Sender: FDA-Public Use
  Company Number: US-ASTRAZENECA-2007UW04192

PATIENT
  Age: 12232 Day
  Sex: Female
  Weight: 72.6 kg

DRUGS (14)
  1. SEROQUEL [Suspect]
     Route: 048
     Dates: start: 20020101, end: 20030301
  2. SEROQUEL [Suspect]
     Route: 048
     Dates: start: 20030219
  3. NEXIUM [Concomitant]
     Route: 048
     Dates: start: 20040512
  4. CLONAZEPAM [Concomitant]
     Dates: start: 20020206
  5. DETROL [Concomitant]
     Dates: start: 20020206
  6. PAXIL [Concomitant]
     Dates: start: 20020206
  7. CELEXA [Concomitant]
     Dates: start: 20020206
  8. PRILOSEC [Concomitant]
     Dates: start: 20020206
  9. ZANTAC [Concomitant]
     Dosage: SIX HRS AS REQUIRED
     Route: 048
     Dates: start: 20060905
  10. HYDROXYZ PAM [Concomitant]
     Dates: start: 20030809
  11. REGLAN [Concomitant]
     Dates: start: 20030303
  12. HYDROXYZINE [Concomitant]
     Dates: start: 20030303
  13. AMBIEN [Concomitant]
     Dates: start: 20030303
  14. PREVACID [Concomitant]
     Dates: start: 20030303

REACTIONS (1)
  - PANCREATITIS [None]
